FAERS Safety Report 8330201-1 (Version None)
Quarter: 2012Q2

REPORT INFORMATION
  Report Type: 
  Country: None (occurrence: None)
  Receive Date: 20120502
  Receipt Date: 20100217
  Transmission Date: 20120825
  Serious: No
  Sender: FDA-Public Use
  Company Number: US-TEVA-2010000910

PATIENT
  Sex: Female
  Weight: 72.64 kg

DRUGS (2)
  1. ANTIDEPRESSANTS [Concomitant]
  2. NUVIGIL [Suspect]
     Indication: FATIGUE
     Route: 048

REACTIONS (2)
  - VOMITING [None]
  - ABDOMINAL DISCOMFORT [None]
